FAERS Safety Report 10619357 (Version 1)
Quarter: 2014Q4

REPORT INFORMATION
  Report Type: Spontaneous
  Country: US (occurrence: None)
  Receive Date: 20141126
  Receipt Date: 20141126
  Transmission Date: 20150529
  Serious: Yes (Other)
  Sender: FDA-Public Use
  Company Number: ADR-2014-02009

PATIENT
  Age: 58 Year
  Sex: Male

DRUGS (1)
  1. BACLOFEN INTRATHECAL [Suspect]
     Active Substance: BACLOFEN
     Indication: MUSCLE SPASTICITY

REACTIONS (9)
  - Pruritus [None]
  - Drug withdrawal syndrome [None]
  - Hypertonia [None]
  - Treatment noncompliance [None]
  - Muscle spasticity [None]
  - Oedema peripheral [None]
  - Medical device complication [None]
  - No therapeutic response [None]
  - Therapy change [None]
